FAERS Safety Report 16925579 (Version 1)
Quarter: 2019Q4

REPORT INFORMATION
  Report Type: Spontaneous
  Country: US (occurrence: US)
  Receive Date: 20190823
  Receipt Date: 20190823
  Transmission Date: 20200122
  Serious: No
  Sender: FDA-Public Use
  Company Number: None

PATIENT
  Age: 56 Year
  Sex: Female

DRUGS (1)
  1. HARVONI [Suspect]
     Active Substance: LEDIPASVIR\SOFOSBUVIR
     Indication: HEPATITIS C
     Route: 048
     Dates: start: 20190813

REACTIONS (5)
  - Abdominal pain upper [None]
  - Headache [None]
  - Diarrhoea [None]
  - Fatigue [None]
  - Lip dry [None]

NARRATIVE: CASE EVENT DATE: 20190813
